FAERS Safety Report 5276128-3 (Version None)
Quarter: 2007Q1

REPORT INFORMATION
  Report Type: 
  Country: None (occurrence: None)
  Receive Date: 20070326
  Receipt Date: 20061006
  Transmission Date: 20070707
  Serious: Yes (Hospitalization)
  Sender: FDA-Public Use
  Company Number: FR-JNJFOC-20060700571

PATIENT
  Age: 45 Year
  Sex: Male

DRUGS (2)
  1. TMC114 [Suspect]
     Route: 048
  2. TMC114 [Suspect]
     Indication: HIV INFECTION
     Route: 048

REACTIONS (1)
  - EPILEPSY [None]
